FAERS Safety Report 5241506-5 (Version None)
Quarter: 2007Q1

REPORT INFORMATION
  Report Type: 
  Country: None (occurrence: None)
  Receive Date: 20070220
  Receipt Date: 20070209
  Transmission Date: 20070707
  Serious: Yes (Hospitalization)
  Sender: FDA-Public Use
  Company Number: FR-GLAXOSMITHKLINE-B0457820A

PATIENT
  Age: 27 Year
  Sex: Female
  Weight: 30 kg

DRUGS (3)
  1. PAROXETINE HCL [Suspect]
     Indication: ANXIETY
     Dosage: 20MG PER DAY
     Route: 048
     Dates: start: 20061205, end: 20061219
  2. LAROXYL [Concomitant]
     Indication: ANXIETY
     Dosage: 13DROP PER DAY
     Route: 048
     Dates: start: 20061101, end: 20061205
  3. LEXOMIL [Concomitant]
     Dosage: 2TAB PER DAY
     Route: 048
     Dates: start: 20061205, end: 20061222

REACTIONS (18)
  - ALOPECIA [None]
  - BACK PAIN [None]
  - BLOOD OSMOLARITY DECREASED [None]
  - CONSTIPATION [None]
  - DECREASED APPETITE [None]
  - DEHYDRATION [None]
  - DISTURBANCE IN ATTENTION [None]
  - HYPOALBUMINAEMIA [None]
  - HYPOGLYCAEMIA [None]
  - HYPONATRAEMIA [None]
  - ILLUSION [None]
  - MALNUTRITION [None]
  - MELANODERMIA [None]
  - MEMORY IMPAIRMENT [None]
  - OEDEMA PERIPHERAL [None]
  - ONYCHOCLASIS [None]
  - SKIN EXFOLIATION [None]
  - WEIGHT DECREASED [None]
